FAERS Safety Report 20583469 (Version 1)
Quarter: 2022Q1

REPORT INFORMATION
  Report Type: Spontaneous
  Country: GB (occurrence: None)
  Receive Date: 20220311
  Receipt Date: 20220311
  Transmission Date: 20220423
  Serious: Yes (Other)
  Sender: FDA-Public Use
  Company Number: 2022A100379

PATIENT
  Age: 76 Year
  Sex: Female
  Weight: 81 kg

DRUGS (1)
  1. CRESTOR [Suspect]
     Active Substance: ROSUVASTATIN CALCIUM
     Indication: Blood cholesterol increased
     Dosage: 5MG5.0MG UNKNOWN
     Route: 065
     Dates: start: 20220201, end: 20220225

REACTIONS (4)
  - Dry skin [Not Recovered/Not Resolved]
  - Lip dry [Not Recovered/Not Resolved]
  - Erythema [Not Recovered/Not Resolved]
  - Lip swelling [Not Recovered/Not Resolved]
